FAERS Safety Report 16651995 (Version 4)
Quarter: 2020Q2

REPORT INFORMATION
  Report Type: Spontaneous
  Country: US (occurrence: US)
  Receive Date: 20190731
  Receipt Date: 20200428
  Transmission Date: 20200713
  Serious: Yes (Hospitalization, Other)
  Sender: FDA-Public Use
  Company Number: US-LEXICON PHARMACEUTICALS, INC-19-1606-00771

PATIENT
  Age: 65 Year
  Sex: Female

DRUGS (18)
  1. NOVOLOG [Concomitant]
     Active Substance: INSULIN ASPART
  2. DICYCLOMINE [Concomitant]
     Active Substance: DICYCLOMINE HYDROCHLORIDE
  3. CREON [Concomitant]
     Active Substance: PANCRELIPASE AMYLASE\PANCRELIPASE LIPASE\PANCRELIPASE PROTEASE
  4. FISH OIL [Concomitant]
     Active Substance: FISH OIL
  5. LYRICA [Concomitant]
     Active Substance: PREGABALIN
  6. TOPROL XL [Concomitant]
     Active Substance: METOPROLOL SUCCINATE
  7. SYNTHROID [Concomitant]
     Active Substance: LEVOTHYROXINE SODIUM
  8. ASPIRIN. [Concomitant]
     Active Substance: ASPIRIN
  9. COMPAZINE [Concomitant]
     Active Substance: PROCHLORPERAZINE MALEATE
  10. TELOTRISTAT ETHYL [Suspect]
     Active Substance: TELOTRISTAT ETHYL
     Indication: CARCINOID TUMOUR OF THE SMALL BOWEL
     Route: 048
     Dates: start: 20170412
  11. SANDOSTATIN [Concomitant]
     Active Substance: OCTREOTIDE ACETATE
  12. THERALITH [Concomitant]
  13. ALPRAZOLAM ER [Concomitant]
     Active Substance: ALPRAZOLAM
  14. PANTOPRAZOLE [Concomitant]
     Active Substance: PANTOPRAZOLE
  15. CALCIUM [Concomitant]
     Active Substance: CALCIUM
  16. NORCO [Concomitant]
     Active Substance: ACETAMINOPHEN\HYDROCODONE BITARTRATE
  17. LIOTHYRONINE [Concomitant]
     Active Substance: LIOTHYRONINE
     Indication: CARCINOID TUMOUR OF THE SMALL BOWEL
  18. TERAZOSIN [Concomitant]
     Active Substance: TERAZOSIN HYDROCHLORIDE

REACTIONS (3)
  - Radioembolisation [Unknown]
  - Therapeutic product effect decreased [Unknown]
  - Haematochezia [Unknown]
